FAERS Safety Report 4360911-2 (Version None)
Quarter: 2004Q2

REPORT INFORMATION
  Report Type: 
  Country: None (occurrence: None)
  Receive Date: 20040517
  Receipt Date: 20040505
  Transmission Date: 20050107
  Serious: Yes (Hospitalization)
  Sender: FDA-Public Use
  Company Number: FR-JNJFOC-20040303084

PATIENT
  Age: 75 Year
  Sex: Female

DRUGS (2)
  1. REMINYL [Suspect]
     Indication: DEMENTIA ALZHEIMER'S TYPE
     Dosage: 12 MG, IN 1 DAY, ORAL
     Route: 048
     Dates: start: 20040201, end: 20040301
  2. FORLAX (MACROGOL) [Concomitant]

REACTIONS (4)
  - BALANCE DISORDER [None]
  - CEREBELLAR SYNDROME [None]
  - MIOSIS [None]
  - SOMNOLENCE [None]
